FAERS Safety Report 9227246 (Version 1)
Quarter: 2013Q2

REPORT INFORMATION
  Report Type: Spontaneous
  Country: US (occurrence: US)
  Receive Date: 20130412
  Receipt Date: 20130412
  Transmission Date: 20140414
  Serious: Yes (Death)
  Sender: FDA-Public Use
  Company Number: PHEH2013US008192

PATIENT
  Age: 75 Year
  Sex: Male

DRUGS (5)
  1. RECLAST [Suspect]
     Dosage: UNK UKN, UNK
     Route: 042
     Dates: start: 20120330
  2. COUMADIN SODIUM [Concomitant]
  3. SIMVASTATIN [Concomitant]
  4. PROSCAR [Concomitant]
  5. SOLATOL [Concomitant]

REACTIONS (1)
  - Death [Fatal]
